FAERS Safety Report 9172821 (Version 2)
Quarter: 2012Q4

REPORT INFORMATION
  Report Type: 
  Country: GB (occurrence: GB)
  Receive Date: 20120911
  Receipt Date: 20121019
  Transmission Date: 20130627
  Serious: Yes (Other)
  Sender: FDA-Public Use
  Company Number: GB-RB-044082-12

PATIENT
  Age: 54 Year
  Sex: Female

DRUGS (4)
  1. SUBOXONE [Suspect]
     Indication: DRUG DEPENDENCE
     Route: 065
     Dates: start: 20120705
  2. SUBOXONE [Suspect]
     Dosage: Prescribed 10 mg
     Route: 065
  3. SUBOXONE [Suspect]
     Route: 065
  4. SUBOXONE [Suspect]
     Dosage: Dose details not provided
     Route: 065
     Dates: start: 20120816, end: 20120822

REACTIONS (19)
  - Self-injurious ideation [Unknown]
  - Psychotic disorder [Recovered/Resolved]
  - Hallucination, visual [Recovered/Resolved]
  - Confusional state [Recovered/Resolved]
  - Lethargy [Recovered/Resolved]
  - Oxygen saturation abnormal [Recovered/Resolved]
  - Hypopnoea [Recovered/Resolved]
  - Wheezing [Recovered/Resolved]
  - Hyperhidrosis [Recovered/Resolved]
  - Pallor [Recovered/Resolved]
  - Depressed mood [Unknown]
  - Drug withdrawal syndrome [Unknown]
  - Hypotension [Recovered/Resolved]
  - Anxiety [Unknown]
  - Urinary tract infection [Unknown]
  - Decreased eye contact [Unknown]
  - Paranoia [Unknown]
  - Disturbance in attention [Unknown]
  - Overdose [Unknown]
